FAERS Safety Report 8363888-8 (Version None)
Quarter: 2012Q2

REPORT INFORMATION
  Report Type: 
  Country: None (occurrence: None)
  Receive Date: 20120516
  Receipt Date: 20120123
  Transmission Date: 20120825
  Serious: No
  Sender: FDA-Public Use
  Company Number: US-ALEXION-A201200125

PATIENT
  Sex: Female
  Weight: 74.1 kg

DRUGS (4)
  1. PEN-VEE K [Concomitant]
     Dosage: 500 MG, BID
     Route: 048
  2. FOLIC ACID [Concomitant]
     Dosage: 400 MG, QD
     Route: 048
  3. SOLIRIS [Suspect]
     Indication: PAROXYSMAL NOCTURNAL HAEMOGLOBINURIA
     Dosage: 600 MG, UNK
     Route: 042
     Dates: start: 20091202, end: 20091230
  4. SOLIRIS [Suspect]
     Dosage: 900 MG, Q2W
     Route: 042
     Dates: start: 20091230

REACTIONS (1)
  - HYPERVENTILATION [None]
